FAERS Safety Report 16746076 (Version 1)
Quarter: 2019Q3

REPORT INFORMATION
  Report Type: Spontaneous
  Country: US (occurrence: US)
  Receive Date: 20190827
  Receipt Date: 20190827
  Transmission Date: 20191005
  Serious: No
  Sender: FDA-Public Use
  Company Number: US-ABBVIE-19K-163-2767017-00

PATIENT

DRUGS (1)
  1. MAVYRET [Suspect]
     Active Substance: GLECAPREVIR\PIBRENTASVIR
     Indication: HEPATITIS C
     Route: 048

REACTIONS (7)
  - Musculoskeletal chest pain [Unknown]
  - Feeling abnormal [Unknown]
  - Hepatic pain [Unknown]
  - Fatigue [Unknown]
  - Contusion [Unknown]
  - Pruritus [Unknown]
  - Headache [Unknown]
